FAERS Safety Report 5813727-1 (Version None)
Quarter: 2008Q3

REPORT INFORMATION
  Report Type: 
  Country: None (occurrence: None)
  Receive Date: 20080717
  Receipt Date: 20080707
  Transmission Date: 20090109
  Serious: Yes (Hospitalization)
  Sender: FDA-Public Use
  Company Number: FR-ROCHE-574833

PATIENT
  Age: 56 Year
  Sex: Male

DRUGS (7)
  1. ROCEPHIN [Suspect]
     Indication: DRUG USE FOR UNKNOWN INDICATION
     Route: 042
     Dates: start: 20080318, end: 20080319
  2. ROCEPHIN [Suspect]
     Dosage: FORM REPORTED AS INJECTABLE SOLUTION.
     Route: 042
     Dates: start: 20080305, end: 20080307
  3. TEGELINE [Suspect]
     Indication: DEMYELINATING POLYNEUROPATHY
     Dosage: FORM REPORTED AS INJECTABLE SOLUTION
     Route: 042
     Dates: start: 20080315, end: 20080319
  4. XATRAL [Suspect]
     Indication: DRUG USE FOR UNKNOWN INDICATION
     Dosage: DRUG REPORTED AS XATRAL LP 10
     Route: 048
  5. RIVOTRIL [Concomitant]
  6. VITAMIN B1/VITAMIN B6 [Concomitant]
  7. LOVENOX [Concomitant]

REACTIONS (5)
  - CHEILITIS [None]
  - DERMATITIS EXFOLIATIVE [None]
  - EXFOLIATIVE RASH [None]
  - IMPETIGO [None]
  - PSORIASIS [None]
